FAERS Safety Report 4590174-4 (Version None)
Quarter: 2005Q1

REPORT INFORMATION
  Report Type: 
  Country: None (occurrence: None)
  Receive Date: 20050217
  Receipt Date: 20050211
  Transmission Date: 20050727
  Serious: Yes (Hospitalization)
  Sender: FDA-Public Use
  Company Number: KII-2005-0015133

PATIENT
  Age: 60 Year
  Sex: Male

DRUGS (9)
  1. MORPHINE SULFATE [Suspect]
     Indication: PAIN
     Dosage: ORAL
     Route: 048
  2. ANTIPSYCHOTICS () [Suspect]
     Dosage: ORAL
     Route: 048
  3. FENTANYL [Suspect]
     Dosage: TRANSDERMAL
     Route: 062
  4. BARBITURATES () [Suspect]
  5. ANTIDEPRESSANTS [Concomitant]
  6. FUROSEMIDE [Concomitant]
  7. ANTIEPILEPTICS [Concomitant]
  8. PRIMIDONE [Concomitant]
  9. CLONAZEPAM [Concomitant]

REACTIONS (5)
  - DISORIENTATION [None]
  - DYSARTHRIA [None]
  - HYPOTENSION [None]
  - MIOSIS [None]
  - MULTIPLE DRUG OVERDOSE [None]
